FAERS Safety Report 19169787 (Version 1)
Quarter: 2021Q2

REPORT INFORMATION
  Report Type: Spontaneous
  Country: AR (occurrence: AR)
  Receive Date: 20210422
  Receipt Date: 20210422
  Transmission Date: 20210717
  Serious: Yes (Other)
  Sender: FDA-Public Use
  Company Number: AR-PFIZER INC-2021401476

PATIENT
  Age: 78 Year
  Sex: Male

DRUGS (2)
  1. LETROZOL [Suspect]
     Active Substance: LETROZOLE
     Indication: BREAST CANCER MALE
     Dosage: UNK, CYCLIC
  2. PALBOCICLIB [Suspect]
     Active Substance: PALBOCICLIB
     Indication: BREAST CANCER MALE
     Dosage: 125 MG, CYCLIC

REACTIONS (3)
  - Neoplasm progression [Unknown]
  - Gene mutation [Unknown]
  - Cardiotoxicity [Unknown]
